FAERS Safety Report 12433339 (Version 4)
Quarter: 2016Q3

REPORT INFORMATION
  Report Type: Report from Study
  Country: US (occurrence: US)
  Receive Date: 20160603
  Receipt Date: 20160801
  Transmission Date: 20161109
  Serious: Yes (Hospitalization, Other)
  Sender: FDA-Public Use
  Company Number: US-ALEXION PHARMACEUTICALS INC-A201603988

PATIENT
  Age: 65 Year
  Sex: Male

DRUGS (1)
  1. SOLIRIS [Suspect]
     Active Substance: ECULIZUMAB
     Indication: PAROXYSMAL NOCTURNAL HAEMOGLOBINURIA
     Dosage: 900 MG, QW
     Route: 042

REACTIONS (11)
  - Pharyngitis [Unknown]
  - Joint swelling [Unknown]
  - Platelet count decreased [Unknown]
  - Splenic infarction [Unknown]
  - Renal infarct [Unknown]
  - Febrile neutropenia [Unknown]
  - Arthralgia [Unknown]
  - Haemoglobin decreased [Unknown]
  - Epiglottitis [Unknown]
  - White blood cell count decreased [Unknown]
  - Abdominal pain [Unknown]

NARRATIVE: CASE EVENT DATE: 20160524
